FAERS Safety Report 8045304-9 (Version None)
Quarter: 2012Q1

REPORT INFORMATION
  Report Type: 
  Country: None (occurrence: None)
  Receive Date: 20120113
  Receipt Date: 20120110
  Transmission Date: 20120608
  Serious: Yes (Other)
  Sender: FDA-Public Use
  Company Number: US-ROCHE-794238

PATIENT
  Sex: Female
  Weight: 57.204 kg

DRUGS (2)
  1. XANAX [Concomitant]
     Indication: ANXIETY
  2. ACCUTANE [Suspect]
     Indication: ACNE
     Route: 065

REACTIONS (5)
  - INTESTINAL OBSTRUCTION [None]
  - IRRITABLE BOWEL SYNDROME [None]
  - INFLAMMATORY BOWEL DISEASE [None]
  - CROHN'S DISEASE [None]
  - ANAEMIA [None]
